FAERS Safety Report 8211633-9 (Version None)
Quarter: 2012Q1

REPORT INFORMATION
  Report Type: 
  Country: None (occurrence: None)
  Receive Date: 20120315
  Receipt Date: 20120302
  Transmission Date: 20120608
  Serious: Yes (Other)
  Sender: FDA-Public Use
  Company Number: AU-PFIZER INC-2012064802

PATIENT
  Age: 26 Year
  Sex: Female

DRUGS (2)
  1. VENLAFAXINE HCL [Suspect]
     Dosage: 37.5 MG/DAY
  2. VENLAFAXINE HCL [Suspect]
     Dosage: 300 MG/DAY

REACTIONS (7)
  - AGGRESSION [None]
  - HOMICIDE [None]
  - SUICIDAL IDEATION [None]
  - MENTAL DISORDER [None]
  - SUICIDAL BEHAVIOUR [None]
  - DRUG LEVEL ABOVE THERAPEUTIC [None]
  - AKATHISIA [None]
